FAERS Safety Report 7110249-5 (Version None)
Quarter: 2010Q4

REPORT INFORMATION
  Report Type: 
  Country: None (occurrence: None)
  Receive Date: 20101117
  Receipt Date: 20101117
  Transmission Date: 20110411
  Serious: Yes (Other)
  Sender: FDA-Public Use
  Company Number: None

PATIENT
  Sex: Female
  Weight: 90.7194 kg

DRUGS (1)
  1. EPIPEN [Suspect]
     Indication: SWOLLEN TONGUE
     Dosage: 2 PACK AS NEEDED 0.3 MG
     Dates: start: 20100916

REACTIONS (1)
  - DEVICE FAILURE [None]
